FAERS Safety Report 11676383 (Version 1)
Quarter: 2015Q4

REPORT INFORMATION
  Report Type: Spontaneous
  Country: US (occurrence: US)
  Receive Date: 20151027
  Receipt Date: 20151027
  Transmission Date: 20160304
  Serious: No
  Sender: FDA-Public Use
  Company Number: US-ELI_LILLY_AND_COMPANY-US201007003641

PATIENT
  Sex: Female

DRUGS (4)
  1. FORTEO [Suspect]
     Active Substance: TERIPARATIDE
     Dosage: 20 UG, DAILY (1/D)
     Dates: end: 201009
  2. FORTEO [Suspect]
     Active Substance: TERIPARATIDE
     Indication: OSTEOPOROSIS
     Dosage: 20 UG, DAILY (1/D)
  3. ASPIRIN. [Concomitant]
     Active Substance: ASPIRIN
     Dosage: UNK, UNKNOWN
  4. FLEXERIL [Concomitant]
     Active Substance: CYCLOBENZAPRINE HYDROCHLORIDE
     Dosage: UNK, UNKNOWN

REACTIONS (24)
  - Arthritis [Not Recovered/Not Resolved]
  - Bone pain [Not Recovered/Not Resolved]
  - Ear pain [Unknown]
  - Musculoskeletal stiffness [Not Recovered/Not Resolved]
  - Bone pain [Recovered/Resolved]
  - Groin pain [Unknown]
  - Musculoskeletal pain [Unknown]
  - Vitamin D decreased [Unknown]
  - Muscle spasms [Recovered/Resolved]
  - Mobility decreased [Recovering/Resolving]
  - Arthropathy [Unknown]
  - Musculoskeletal stiffness [Recovered/Resolved]
  - Pain [Recovered/Resolved]
  - Gait disturbance [Not Recovered/Not Resolved]
  - Bone density decreased [Unknown]
  - Insomnia [Unknown]
  - Flank pain [Unknown]
  - Tension [Unknown]
  - Arthralgia [Not Recovered/Not Resolved]
  - Mobility decreased [Not Recovered/Not Resolved]
  - Rotator cuff syndrome [Unknown]
  - Abdominal pain upper [Unknown]
  - Bone pain [Unknown]
  - Muscle spasms [Unknown]
